FAERS Safety Report 9596857 (Version 1)
Quarter: 2013Q4

REPORT INFORMATION
  Report Type: Spontaneous
  Country: US (occurrence: US)
  Receive Date: 20131003
  Receipt Date: 20131003
  Transmission Date: 20140711
  Serious: No
  Sender: FDA-Public Use
  Company Number: US-AMGEN-USASP2012073582

PATIENT
  Age: 57 Year
  Sex: Female
  Weight: 113 kg

DRUGS (16)
  1. ENBREL [Suspect]
     Indication: PRODUCT USED FOR UNKNOWN INDICATION
     Dosage: 50 MG, QWK
     Route: 058
  2. PANTOPRAZOLE [Concomitant]
     Dosage: 20 MG, UNK
  3. METHOTREXATE [Concomitant]
     Dosage: 2.5 MG, UNK
  4. METFORMIN [Concomitant]
     Dosage: 500 MG, UNK
  5. BUPROPION [Concomitant]
     Dosage: 100 MG, UNK
  6. CITALOPRAM [Concomitant]
     Dosage: 20 MG, UNK
  7. FENOFIBRATE [Concomitant]
     Dosage: 134 MG, UNK
  8. FOLIC ACID [Concomitant]
     Dosage: 1 MG, UNK
  9. NOVOLOG [Concomitant]
     Dosage: UNK
  10. LEVEMIR [Concomitant]
     Dosage: UNK
  11. VITAMIN C                          /00008001/ [Concomitant]
     Dosage: 1000 MG, UNK
  12. AMITRIPTYLIN [Concomitant]
     Dosage: 10 MG, UNK
  13. GAS RELIEF [Concomitant]
     Dosage: 125 MG, UNK
  14. TRIAMTEREEN/HYDROCHLOOTTHIAZIDE [Concomitant]
     Dosage: 37.5-25
  15. CALCIUM 600 + D [Suspect]
     Dosage: UNK
  16. MINERALS NOS [Concomitant]
     Dosage: UNK

REACTIONS (2)
  - Injection site swelling [Unknown]
  - Injection site papule [Unknown]
